FAERS Safety Report 5374015-3 (Version None)
Quarter: 2007Q2

REPORT INFORMATION
  Report Type: 
  Country: None (occurrence: None)
  Receive Date: 20070628
  Receipt Date: 20070626
  Transmission Date: 20071010
  Serious: Yes (Hospitalization)
  Sender: FDA-Public Use
  Company Number: FR-MERCK-0612FRA00012

PATIENT
  Age: 60 Year
  Sex: Female

DRUGS (9)
  1. ZOCOR [Suspect]
     Indication: CORONARY ARTERY DISEASE
     Route: 048
     Dates: start: 20020615
  2. ALLOPURINOL [Suspect]
     Route: 048
     Dates: start: 20040315
  3. GLIMEPIRIDE [Suspect]
     Indication: DIABETES MELLITUS NON-INSULIN-DEPENDENT
     Route: 048
  4. NITROGLYCERIN [Suspect]
     Indication: CORONARY ARTERY DISEASE
     Route: 061
     Dates: start: 20020615, end: 20060215
  5. RAMIPRIL [Suspect]
     Indication: CORONARY ARTERY DISEASE
     Route: 048
     Dates: start: 20020615
  6. ASPIRIN LYSINE [Suspect]
     Indication: CORONARY ARTERY DISEASE
     Route: 048
     Dates: start: 20020615
  7. INSULIN HUMAN, ISOPHANE [Concomitant]
     Indication: DIABETES MELLITUS
     Route: 058
  8. LEVOTHYROXINE SODIUM [Concomitant]
     Indication: HYPOTHYROIDISM
     Route: 048
  9. HYDROXYZINE HYDROCHLORIDE [Concomitant]
     Route: 048

REACTIONS (1)
  - LICHENOID KERATOSIS [None]
